FAERS Safety Report 22371848 (Version 1)
Quarter: 2023Q2

REPORT INFORMATION
  Report Type: Spontaneous
  Country: US (occurrence: US)
  Receive Date: 20230526
  Receipt Date: 20230526
  Transmission Date: 20230722
  Serious: No
  Sender: FDA-Public Use
  Company Number: US-PFIZER INC-202300200103

PATIENT
  Age: 86 Year
  Sex: Male
  Weight: 72.12 kg

DRUGS (5)
  1. PAXLOVID [Suspect]
     Active Substance: NIRMATRELVIR\RITONAVIR
     Indication: COVID-19 treatment
     Dosage: 3 PILLS TWICE A DAY; NIRMATRELVIR 150MG 2 OF THOSE AND 1 RITONAVIR 100MG
     Dates: start: 20230520
  2. MEDROL [Concomitant]
     Active Substance: METHYLPREDNISOLONE
     Indication: Dyspnoea
     Dosage: TAKES 6 THE FIRST DAY AND THEN 5 4 3 2 1
     Dates: start: 20230520
  3. TESTOSTERONE [Concomitant]
     Active Substance: TESTOSTERONE
     Indication: Prolactin-producing pituitary tumour
     Dosage: UNK
  4. SIMVASTATIN [Concomitant]
     Active Substance: SIMVASTATIN
     Dosage: UNK
     Dates: end: 20230520
  5. BROMOCRIPTINE [Concomitant]
     Active Substance: BROMOCRIPTINE
     Indication: Prolactin-producing pituitary tumour
     Dosage: UNK

REACTIONS (1)
  - Pollakiuria [Recovering/Resolving]

NARRATIVE: CASE EVENT DATE: 20230522
